APPROVED DRUG PRODUCT: SPY AGENT GREEN KIT
Active Ingredient: INDOCYANINE GREEN
Strength: 25MG/VIAL
Dosage Form/Route: POWDER;INTRAVENOUS, INTERSTITIAL
Application: N211580 | Product #001
Applicant: NOVADAQ TECHNOLOGIES ULC
Approved: Nov 21, 2018 | RLD: Yes | RS: Yes | Type: RX

PATENTS:
Patent 8647605 | Expires: Feb 11, 2029
Patent 8406860 | Expires: Apr 9, 2029
Patent 8185176 | Expires: Jun 4, 2028
Patent 8647605 | Expires: Feb 11, 2029
Patent 10631746 | Expires: Aug 4, 2035
Patent 11712320 | Expires: Jul 14, 2039

EXCLUSIVITY:
Code: I-911 | Date: Jun 5, 2026